FAERS Safety Report 13363536 (Version 2)
Quarter: 2017Q2

REPORT INFORMATION
  Report Type: Spontaneous
  Country: AR (occurrence: AR)
  Receive Date: 20170323
  Receipt Date: 20170403
  Transmission Date: 20170830
  Serious: Yes (Life-Threatening, Other)
  Sender: FDA-Public Use
  Company Number: PHHY2016AR159799

PATIENT
  Age: 29 Year
  Sex: Male

DRUGS (6)
  1. MYCOPHENOLIC ACID. [Suspect]
     Active Substance: MYCOPHENOLIC ACID
     Indication: IMMUNOSUPPRESSANT DRUG THERAPY
  2. OKT3 [Suspect]
     Active Substance: MUROMONAB-CD3
     Indication: IMMUNOSUPPRESSANT DRUG THERAPY
  3. CICLOSPORIN [Suspect]
     Active Substance: CYCLOSPORINE
     Indication: IMMUNOSUPPRESSANT DRUG THERAPY
  4. CICLOSPORIN [Suspect]
     Active Substance: CYCLOSPORINE
     Indication: RENAL TRANSPLANT
     Dosage: UNK
     Route: 065
  5. OKT3 [Suspect]
     Active Substance: MUROMONAB-CD3
     Indication: RENAL TRANSPLANT
     Dosage: UNK
     Route: 065
  6. MYCOPHENOLIC ACID. [Suspect]
     Active Substance: MYCOPHENOLIC ACID
     Indication: RENAL TRANSPLANT
     Dosage: UNK
     Route: 065

REACTIONS (8)
  - Anaemia [Unknown]
  - Weight decreased [Unknown]
  - Intestinal perforation [Unknown]
  - Pyrexia [Unknown]
  - Abdominal pain [Unknown]
  - Post transplant lymphoproliferative disorder [Recovering/Resolving]
  - Diffuse large B-cell lymphoma [Recovering/Resolving]
  - Abdominal mass [Recovered/Resolved]
